FAERS Safety Report 4582616-5 (Version None)
Quarter: 2005Q1

REPORT INFORMATION
  Report Type: 
  Country: None (occurrence: None)
  Receive Date: 20050211
  Receipt Date: 20050211
  Transmission Date: 20050727
  Serious: Yes (Other)
  Sender: FDA-Public Use
  Company Number: None

PATIENT
  Age: 26 Year
  Sex: Female
  Weight: 49.8957 kg

DRUGS (1)
  1. DEPO-PROVERA [Suspect]
     Dosage: INTRAMUSCULAR
     Route: 030
     Dates: start: 20041208, end: 20050308

REACTIONS (6)
  - ANAEMIA [None]
  - BONE DENSITY DECREASED [None]
  - INFERTILITY [None]
  - IRRITABILITY [None]
  - MENORRHAGIA [None]
  - PAIN [None]
